FAERS Safety Report 4933620-6 (Version None)
Quarter: 2006Q1

REPORT INFORMATION
  Report Type: 
  Country: None (occurrence: None)
  Receive Date: 20060306
  Receipt Date: 20060213
  Transmission Date: 20060701
  Serious: Yes (Death)
  Sender: FDA-Public Use
  Company Number: JP-ROCHE-436866

PATIENT
  Age: 32 Year
  Sex: Male

DRUGS (12)
  1. TAMIFLU [Suspect]
     Indication: DRUG USE FOR UNKNOWN INDICATION
     Route: 048
     Dates: start: 20060212, end: 20060212
  2. ACETAMINOPHEN [Concomitant]
     Dosage: ORAL FORMULATION (NOT OTHERWISE SPECIFIED).
     Route: 048
     Dates: start: 20060212, end: 20060212
  3. ZYPREXA [Concomitant]
     Dosage: FORMULATION REPORTED AS FINE GRANULES.
     Route: 048
  4. RISPERDAL [Concomitant]
     Dosage: FORMULATION REPORTED AS FINE GRANULES.
     Route: 048
  5. LEVOTOMIN [Concomitant]
     Route: 048
  6. TEGRETOL [Concomitant]
     Dosage: REPORTED AS FINE GRANULES.
     Route: 048
  7. TASMOLIN [Concomitant]
     Route: 048
  8. MAGNESIUM OXIDE [Concomitant]
     Dosage: ORAL FORMULATION NOT OTHERWISE SPECIFIED.
     Route: 048
  9. PANTETHINE [Concomitant]
     Route: 048
  10. ZYPREXA [Concomitant]
     Route: 048
  11. RISPERDAL [Concomitant]
     Route: 048
  12. LEVOTOMIN [Concomitant]
     Route: 048

REACTIONS (1)
  - CARDIAC FAILURE ACUTE [None]
